FAERS Safety Report 19772543 (Version 1)
Quarter: 2021Q3

REPORT INFORMATION
  Report Type: Report from Study
  Country: US (occurrence: US)
  Receive Date: 20210901
  Receipt Date: 20210901
  Transmission Date: 20211014
  Serious: Yes (Hospitalization)
  Sender: FDA-Public Use
  Company Number: US-IPSEN BIOPHARMACEUTICALS, INC.-2021-21068

PATIENT
  Age: 58 Year
  Sex: Female

DRUGS (1)
  1. SOMATULINE DEPOT [Suspect]
     Active Substance: LANREOTIDE ACETATE
     Indication: SMALL INTESTINE CARCINOMA
     Route: 058
     Dates: start: 202011

REACTIONS (6)
  - Diarrhoea [Recovering/Resolving]
  - Therapeutic response shortened [Unknown]
  - Lesion excision [Recovering/Resolving]
  - Blood potassium decreased [Recovering/Resolving]
  - Flushing [Recovered/Resolved]
  - Hepatic neoplasm [Recovering/Resolving]

NARRATIVE: CASE EVENT DATE: 2021
